FAERS Safety Report 9532432 (Version 8)
Quarter: 2014Q2

REPORT INFORMATION
  Report Type: Report from Study
  Country: US (occurrence: US)
  Receive Date: 20130918
  Receipt Date: 20140423
  Transmission Date: 20141212
  Serious: Yes (Hospitalization, Other)
  Sender: FDA-Public Use
  Company Number: US-ACTELION-A-US2013-88407

PATIENT
  Age: 78 Year
  Sex: Female

DRUGS (2)
  1. VENTAVIS [Suspect]
     Indication: PULMONARY ARTERIAL HYPERTENSION
     Dosage: 5 MCG, 6-9 X DAILY
     Route: 055
     Dates: start: 20120221
  2. TRACLEER [Suspect]
     Indication: PULMONARY ARTERIAL HYPERTENSION
     Dosage: UNK
     Route: 048

REACTIONS (12)
  - Dialysis [Unknown]
  - Pulmonary oedema [Unknown]
  - Bronchitis [Unknown]
  - Renal disorder [Unknown]
  - Blood potassium increased [Unknown]
  - Pneumonia [Unknown]
  - Hypotension [Unknown]
  - Cardiac failure congestive [Unknown]
  - Fluid retention [Unknown]
  - Fatigue [Unknown]
  - Drug dose omission [Unknown]
  - Device malfunction [Unknown]
